FAERS Safety Report 5384062-3 (Version None)
Quarter: 2007Q3

REPORT INFORMATION
  Report Type: 
  Country: None (occurrence: None)
  Receive Date: 20070711
  Receipt Date: 20070702
  Transmission Date: 20080115
  Serious: Yes (Other)
  Sender: FDA-Public Use
  Company Number: US-ASTRAZENECA-2006UW14649

PATIENT
  Age: 709 Month
  Sex: Female
  Weight: 81.8 kg

DRUGS (5)
  1. SEROQUEL [Suspect]
     Indication: ANXIETY
     Dosage: 100 MG TO 600 MG  DAILY
     Route: 048
     Dates: start: 20030101, end: 20060201
  2. SEROQUEL [Suspect]
     Indication: DEPRESSION
     Dosage: 100 MG TO 600 MG  DAILY
     Route: 048
     Dates: start: 20030101, end: 20060201
  3. ABILIFY [Concomitant]
     Dates: start: 20050101
  4. CLOZAPINE [Concomitant]
  5. HALOPERIDOL [Concomitant]
     Dates: start: 20050101

REACTIONS (5)
  - BLOOD CHOLESTEROL INCREASED [None]
  - BLOOD TRIGLYCERIDES INCREASED [None]
  - DIABETES MELLITUS [None]
  - DIABETIC COMA [None]
  - NEOPLASM MALIGNANT [None]
